FAERS Safety Report 8997947 (Version 2)
Quarter: 2013Q1

REPORT INFORMATION
  Report Type: Report from Study
  Country: US (occurrence: US)
  Receive Date: 20130104
  Receipt Date: 20130312
  Transmission Date: 20140127
  Serious: Yes (Hospitalization)
  Sender: FDA-Public Use
  Company Number: US-BAYER-2013-000351

PATIENT
  Age: 56 Year
  Sex: Male

DRUGS (2)
  1. BETASERON [Suspect]
     Indication: RELAPSING-REMITTING MULTIPLE SCLEROSIS
     Dosage: 8 MIU, QOD
     Dates: start: 20120716
  2. METOPROLOL [Concomitant]

REACTIONS (2)
  - Coronary artery disease [Recovered/Resolved]
  - Arteriosclerosis [Recovered/Resolved]
